FAERS Safety Report 19581187 (Version 1)
Quarter: 2021Q3

REPORT INFORMATION
  Report Type: Report from Study
  Country: US (occurrence: US)
  Receive Date: 20210719
  Receipt Date: 20210719
  Transmission Date: 20211014
  Serious: Yes (Life-Threatening, Hospitalization, Other)
  Sender: FDA-Public Use
  Company Number: US-BIOGEN-2021BI01029802

PATIENT
  Sex: Male

DRUGS (1)
  1. TECFIDERA [Suspect]
     Active Substance: DIMETHYL FUMARATE
     Indication: MULTIPLE SCLEROSIS
     Route: 048
     Dates: start: 20160113, end: 202107

REACTIONS (4)
  - Thrombotic stroke [Recovered/Resolved]
  - Thrombosis [Unknown]
  - Pulmonary thrombosis [Recovered/Resolved]
  - Hot flush [Recovered/Resolved]
